FAERS Safety Report 5564956-6 (Version None)
Quarter: 2007Q4

REPORT INFORMATION
  Report Type: 
  Country: None (occurrence: None)
  Receive Date: 20071218
  Receipt Date: 20071214
  Transmission Date: 20080405
  Serious: Yes (Life-Threatening)
  Sender: FDA-Public Use
  Company Number: B0499550A

PATIENT
  Age: 13 Year
  Sex: Female
  Weight: 36.1 kg

DRUGS (2)
  1. RELENZA [Suspect]
     Indication: INFLUENZA
     Dosage: 10MG TWICE PER DAY
     Route: 055
     Dates: start: 20071210, end: 20071210
  2. CALONAL [Concomitant]
     Dosage: 600MG PER DAY
     Route: 048
     Dates: start: 20071210, end: 20071210

REACTIONS (2)
  - HALLUCINATION [None]
  - SUICIDAL IDEATION [None]
